FAERS Safety Report 13747768 (Version 1)
Quarter: 2017Q3

REPORT INFORMATION
  Report Type: Report from Study
  Country: None (occurrence: US)
  Receive Date: 20170713
  Receipt Date: 20170713
  Transmission Date: 20171127
  Serious: Yes (Other)
  Sender: FDA-Public Use
  Company Number: US-ABBVIE-17K-163-1936023-00

PATIENT
  Sex: Female

DRUGS (1)
  1. HUMIRA [Suspect]
     Active Substance: ADALIMUMAB
     Indication: PSORIASIS
     Route: 058
     Dates: end: 2014

REACTIONS (3)
  - Drug ineffective [Unknown]
  - Osteoarthritis [Recovered/Resolved]
  - Drug specific antibody present [Recovered/Resolved]

NARRATIVE: CASE EVENT DATE: 2013
